FAERS Safety Report 6395008-3 (Version None)
Quarter: 2009Q4

REPORT INFORMATION
  Report Type: 
  Country: None (occurrence: None)
  Receive Date: 20091009
  Receipt Date: 20090908
  Transmission Date: 20100525
  Serious: No
  Sender: FDA-Public Use
  Company Number: US-BAYER-200932682NA

PATIENT
  Sex: Male

DRUGS (7)
  1. LEVITRA [Suspect]
     Indication: DRUG USE FOR UNKNOWN INDICATION
  2. BUPROPION HCL [Concomitant]
  3. FLUTICASONE PROPIONATE [Concomitant]
  4. ACIPHEX [Concomitant]
  5. LIPITOR [Concomitant]
  6. MICROZIDE [Concomitant]
  7. LOTREL [Concomitant]

REACTIONS (1)
  - ERECTILE DYSFUNCTION [None]
